FAERS Safety Report 4447914-4 (Version None)
Quarter: 2004Q3

REPORT INFORMATION
  Report Type: 
  Country: None (occurrence: None)
  Receive Date: 20040819
  Receipt Date: 20030917
  Transmission Date: 20050211
  Serious: Yes (Hospitalization)
  Sender: FDA-Public Use
  Company Number: 2003177182US

PATIENT
  Age: 61 Year
  Sex: Female
  Weight: 52.2 kg

DRUGS (1)
  1. ROGAINE [Suspect]
     Indication: FEMALE PATTERN BALDNESS
     Dosage: 0.25 ML, BID, TOPICAL
     Route: 061
     Dates: start: 20010517, end: 20030910

REACTIONS (3)
  - HEART RATE INCREASED [None]
  - NAUSEA [None]
  - VERTIGO [None]
